FAERS Safety Report 9263865 (Version 1)
Quarter: 2013Q2

REPORT INFORMATION
  Report Type: Spontaneous
  Country: US (occurrence: None)
  Receive Date: 20130429
  Receipt Date: 20130429
  Transmission Date: 20140414
  Serious: Yes (Other)
  Sender: FDA-Public Use
  Company Number: None

PATIENT
  Age: 32 Year
  Sex: Female
  Weight: 66.68 kg

DRUGS (1)
  1. CREST PRO-HEALTH CLINICAL GUM PROTECTION [Suspect]

REACTIONS (7)
  - Oral infection [None]
  - Aphthous stomatitis [None]
  - Tongue coated [None]
  - Oral pain [None]
  - Gingival pain [None]
  - Mouth haemorrhage [None]
  - Lip swelling [None]
